FAERS Safety Report 5082637-2 (Version None)
Quarter: 2006Q3

REPORT INFORMATION
  Report Type: 
  Country: None (occurrence: None)
  Receive Date: 20060814
  Receipt Date: 20060802
  Transmission Date: 20061208
  Serious: Yes (Hospitalization, Other)
  Sender: FDA-Public Use
  Company Number: 2006-07-1395

PATIENT
  Age: 72 Year
  Sex: Female

DRUGS (3)
  1. PEG-INTRON [Suspect]
     Indication: HEPATITIS C
     Dosage: SUBCUTANEOUS
     Route: 058
     Dates: start: 20001101, end: 20010201
  2. REBETOL [Suspect]
     Indication: HEPATITIS C
     Dosage: ORAL
     Route: 048
     Dates: start: 20001101, end: 20010201
  3. ANGIOTENSIN CONVERTING ENZYME INHIBITOR [Concomitant]

REACTIONS (18)
  - B-CELL LYMPHOMA [None]
  - COUGH [None]
  - DIVERTICULUM INTESTINAL [None]
  - DRUG INTOLERANCE [None]
  - HELICOBACTER GASTRITIS [None]
  - HEPATIC CYST [None]
  - HIATUS HERNIA [None]
  - HYPERTENSION [None]
  - HYPERURICAEMIA [None]
  - METASTASES TO ABDOMINAL CAVITY [None]
  - METASTASES TO LIVER [None]
  - METASTASES TO PANCREAS [None]
  - METASTASES TO SPLEEN [None]
  - METASTASIS [None]
  - MUSCULOSKELETAL PAIN [None]
  - PERFORMANCE STATUS DECREASED [None]
  - ROTATOR CUFF SYNDROME [None]
  - SPLENOMEGALY [None]
